FAERS Safety Report 20805657 (Version 1)
Quarter: 2022Q2

REPORT INFORMATION
  Report Type: Report from Study
  Country: CA (occurrence: CA)
  Receive Date: 20220510
  Receipt Date: 20220510
  Transmission Date: 20220721
  Serious: Yes (Hospitalization)
  Sender: FDA-Public Use
  Company Number: CA-ABBVIE-22K-028-4384675-00

PATIENT
  Age: 70 Year
  Sex: Female

DRUGS (3)
  1. VENCLEXTA [Suspect]
     Active Substance: VENETOCLAX
     Indication: Richter^s syndrome
     Dosage: DAY 1
     Route: 048
     Dates: start: 20220503, end: 20220503
  2. VENCLEXTA [Suspect]
     Active Substance: VENETOCLAX
     Dosage: DAY 2
     Route: 048
     Dates: start: 20220504, end: 20220504
  3. VENCLEXTA [Suspect]
     Active Substance: VENETOCLAX
     Dosage: DAY 3
     Route: 048
     Dates: start: 20220505, end: 20220505

REACTIONS (1)
  - Infection [Not Recovered/Not Resolved]

NARRATIVE: CASE EVENT DATE: 20220501
